FAERS Safety Report 26179908 (Version 1)
Quarter: 2025Q4

REPORT INFORMATION
  Report Type: Spontaneous
  Country: US (occurrence: US)
  Receive Date: 20251219
  Receipt Date: 20251219
  Transmission Date: 20260117
  Serious: No
  Sender: MERCK SHARP & DOHME LLC
  Company Number: US-009507513-2357468

PATIENT
  Age: 59 Year
  Sex: Female
  Weight: 88 kg

DRUGS (22)
  1. WINREVAIR [Suspect]
     Active Substance: SOTATERCEPT-CSRK
  2. WINREVAIR [Suspect]
     Active Substance: SOTATERCEPT-CSRK
  3. WINREVAIR [Suspect]
     Active Substance: SOTATERCEPT-CSRK
  4. WINREVAIR [Suspect]
     Active Substance: SOTATERCEPT-CSRK
  5. YUTREPIA [Concomitant]
     Active Substance: TREPROSTINIL SODIUM
     Indication: Pulmonary arterial hypertension
     Dosage: 106 MICROGRAM, QID (INHALE 2 BREATHS PER CAPSULE 4 TIMES A DAY), RESPIRATORY
     Route: 055
     Dates: start: 2025
  6. TRAMADOL [Concomitant]
     Active Substance: TRAMADOL
  7. CLOPIDOGREL [Concomitant]
     Active Substance: CLOPIDOGREL BISULFATE
  8. FUROSEMIDE [Concomitant]
     Active Substance: FUROSEMIDE
  9. ATORVASTATIN [Concomitant]
     Active Substance: ATORVASTATIN
  10. OXYGEN [Concomitant]
     Active Substance: OXYGEN
  11. TADALAFIL [Concomitant]
     Active Substance: TADALAFIL
  12. IRON [Concomitant]
     Active Substance: IRON
  13. MYCOPHENOLIC ACID [Concomitant]
     Active Substance: MYCOPHENOLIC ACID
  14. ALBUTEROL [Concomitant]
     Active Substance: ALBUTEROL
  15. PREDNISONE [Concomitant]
     Active Substance: PREDNISONE
  16. ASPIRIN [Concomitant]
     Active Substance: ASPIRIN
  17. CLOBETASOL [Concomitant]
     Active Substance: CLOBETASOL
  18. SPIRONOLACTONE [Concomitant]
     Active Substance: SPIRONOLACTONE
  19. CLOTRIMAZOLE [Concomitant]
     Active Substance: CLOTRIMAZOLE
  20. OMEPRAZOLE [Concomitant]
     Active Substance: OMEPRAZOLE
  21. PLAQUENIL [Concomitant]
     Active Substance: HYDROXYCHLOROQUINE SULFATE
  22. NYSTATIN [Concomitant]
     Active Substance: NYSTATIN

REACTIONS (1)
  - Epistaxis [Unknown]
